FAERS Safety Report 24047844 (Version 1)
Quarter: 2024Q3

REPORT INFORMATION
  Report Type: Spontaneous
  Country: CZ (occurrence: CZ)
  Receive Date: 20240703
  Receipt Date: 20240703
  Transmission Date: 20241017
  Serious: Yes (Death, Hospitalization, Other)
  Sender: BAUSCH AND LOMB
  Company Number: CZ-JNJFOC-20240655068

PATIENT
  Age: 63 Year
  Sex: Male

DRUGS (4)
  1. DEXAMETHASONE [Suspect]
     Active Substance: DEXAMETHASONE
     Indication: Primary amyloidosis
     Route: 065
  2. CYCLOPHOSPHAMIDE [Suspect]
     Active Substance: CYCLOPHOSPHAMIDE
     Indication: Primary amyloidosis
     Route: 065
  3. DARZALEX [Suspect]
     Active Substance: DARATUMUMAB
     Indication: Primary amyloidosis
     Route: 058
  4. VELCADE [Suspect]
     Active Substance: BORTEZOMIB
     Indication: Primary amyloidosis
     Route: 065

REACTIONS (5)
  - Cardiac arrest [Fatal]
  - Nephrotic syndrome [Unknown]
  - Generalised oedema [Unknown]
  - Renal impairment [Unknown]
  - Cardiac failure [Unknown]
